FAERS Safety Report 5124271-1 (Version None)
Quarter: 2006Q4

REPORT INFORMATION
  Report Type: 
  Country: None (occurrence: None)
  Receive Date: 20061010
  Receipt Date: 20060928
  Transmission Date: 20070319
  Serious: Yes (Death, Hospitalization)
  Sender: FDA-Public Use
  Company Number: FR-GILEAD-2006-0010364

PATIENT
  Age: 35 Year
  Sex: Female
  Weight: 63 kg

DRUGS (2)
  1. TRUVADA [Suspect]
     Route: 048
     Dates: start: 20060424, end: 20060709
  2. VIRAMUNE [Suspect]
     Route: 048
     Dates: start: 20050303, end: 20060709

REACTIONS (12)
  - ABDOMINAL PAIN [None]
  - DIARRHOEA [None]
  - DIZZINESS [None]
  - DYSPNOEA [None]
  - GAMMA-GLUTAMYLTRANSFERASE INCREASED [None]
  - LACTIC ACIDOSIS [None]
  - MICROCYTIC ANAEMIA [None]
  - PALPITATIONS [None]
  - SUDDEN DEATH [None]
  - SYNCOPE [None]
  - THROMBOCYTOPENIA [None]
  - URINARY INCONTINENCE [None]
